FAERS Safety Report 9179481 (Version 2)
Quarter: 2013Q2

REPORT INFORMATION
  Report Type: Report from Study
  Country: AU (occurrence: AU)
  Receive Date: 20130321
  Receipt Date: 20130405
  Transmission Date: 20140414
  Serious: Yes (Other)
  Sender: FDA-Public Use
  Company Number: PHHO2013AU003965

PATIENT
  Age: 81 Year
  Sex: Male
  Weight: 80 kg

DRUGS (5)
  1. AMN107 [Suspect]
     Indication: CHRONIC MYELOID LEUKAEMIA
     Dosage: 400 MG, QD
     Route: 048
     Dates: start: 20110131, end: 20130315
  2. STEMETIL//PROCHLORPERAZINE [Concomitant]
     Indication: VERTIGO
     Dosage: 12.5 MG, PRN
     Route: 048
     Dates: start: 201303
  3. STEMETIL//PROCHLORPERAZINE [Concomitant]
     Indication: NAUSEA
  4. ELOCON [Concomitant]
     Indication: RASH
     Dosage: 0.1 %, QD
     Route: 061
     Dates: start: 201107
  5. BETAHISTINE [Concomitant]
     Indication: RASH
     Dosage: 16 MG, PRN
     Route: 048

REACTIONS (1)
  - Cerebral infarction [Recovering/Resolving]
